FAERS Safety Report 8373929-X (Version None)
Quarter: 2012Q2

REPORT INFORMATION
  Report Type: 
  Country: None (occurrence: None)
  Receive Date: 20120521
  Receipt Date: 20120512
  Transmission Date: 20120825
  Serious: Yes (Other)
  Sender: FDA-Public Use
  Company Number: US-ABBOTT-12P-163-0935579-00

PATIENT
  Sex: Male
  Weight: 93.978 kg

DRUGS (6)
  1. COUMADIN [Suspect]
     Indication: PRODUCT USED FOR UNKNOWN INDICATION
  2. ASPIRIN [Concomitant]
     Indication: PRODUCT USED FOR UNKNOWN INDICATION
  3. NEXIUM [Concomitant]
     Indication: GASTROOESOPHAGEAL REFLUX DISEASE
  4. SIMVASTATIN [Concomitant]
     Indication: PRODUCT USED FOR UNKNOWN INDICATION
  5. MENS ONE A DAY MULTIVITAMIN [Concomitant]
     Indication: PRODUCT USED FOR UNKNOWN INDICATION
  6. HUMIRA [Suspect]
     Indication: PSORIASIS
     Dates: end: 20120426

REACTIONS (6)
  - CORONARY ARTERY OCCLUSION [None]
  - GINGIVAL INFECTION [None]
  - INCREASED TENDENCY TO BRUISE [None]
  - ARTHROPOD BITE [None]
  - HAEMORRHAGE [None]
  - CATHETERISATION CARDIAC [None]
